FAERS Safety Report 7252214-3 (Version None)
Quarter: 2011Q1

REPORT INFORMATION
  Report Type: 
  Country: None (occurrence: None)
  Receive Date: 20110129
  Receipt Date: 20100405
  Transmission Date: 20110831
  Serious: No
  Sender: FDA-Public Use
  Company Number: US-ABBOTT-10P-163-0636369-00

PATIENT
  Sex: Female
  Weight: 45.4 kg

DRUGS (2)
  1. HUMIRA [Suspect]
     Indication: RHEUMATOID ARTHRITIS
     Dates: start: 20100324
  2. ZYRTEC [Concomitant]
     Indication: SEASONAL ALLERGY
     Dosage: DAILY

REACTIONS (3)
  - RASH [None]
  - PRURITUS [None]
  - INJECTION SITE RASH [None]
